FAERS Safety Report 17356970 (Version 1)
Quarter: 2020Q1

REPORT INFORMATION
  Report Type: Spontaneous
  Country: US (occurrence: US)
  Receive Date: 20200131
  Receipt Date: 20200131
  Transmission Date: 20200409
  Serious: No
  Sender: FDA-Public Use
  Company Number: US-PFIZER INC-2020041124

PATIENT
  Age: 64 Year
  Sex: Female
  Weight: 92.53 kg

DRUGS (2)
  1. PRISTIQ EXTENDED-RELEASE [Suspect]
     Active Substance: DESVENLAFAXINE SUCCINATE
     Indication: DEPRESSION
     Dosage: 50 MG, 1X/DAY
     Route: 048
  2. PROTONIX [OMEPRAZOLE] [Concomitant]
     Active Substance: OMEPRAZOLE
     Indication: DYSPEPSIA
     Dosage: UNK

REACTIONS (3)
  - Back injury [Unknown]
  - Dysstasia [Unknown]
  - Cystitis [Unknown]
